FAERS Safety Report 13902519 (Version 1)
Quarter: 2017Q3

REPORT INFORMATION
  Report Type: Spontaneous
  Country: US (occurrence: US)
  Receive Date: 20170824
  Receipt Date: 20170824
  Transmission Date: 20171127
  Serious: Yes (Other)
  Sender: FDA-Public Use
  Company Number: US-KADMON PHARMACEUTICALS, LLC-KAD201708-000924

PATIENT
  Age: 67 Year
  Sex: Male

DRUGS (3)
  1. PEG-INTERFERON ALFA-2A [Suspect]
     Active Substance: PEGINTERFERON ALFA-2A
     Dosage: PRE-FILLED SYRINGE
     Dates: start: 20120402
  2. RIBASPHERE [Suspect]
     Active Substance: RIBAVIRIN
     Dates: start: 20120402
  3. BOCEPREVIR [Suspect]
     Active Substance: BOCEPREVIR
     Dates: start: 20120530

REACTIONS (3)
  - Disorientation [Unknown]
  - White blood cell count decreased [Unknown]
  - Lung infection [Unknown]
